FAERS Safety Report 19158187 (Version 2)
Quarter: 2021Q2

REPORT INFORMATION
  Report Type: Spontaneous
  Country: US (occurrence: US)
  Receive Date: 20210420
  Receipt Date: 20210425
  Transmission Date: 20210717
  Serious: No
  Sender: FDA-Public Use
  Company Number: US-ELI_LILLY_AND_COMPANY-US202104008686

PATIENT
  Sex: Female

DRUGS (2)
  1. INSULIN LISPRO LILLY [Suspect]
     Active Substance: INSULIN LISPRO
     Indication: DIABETES MELLITUS
     Dosage: 15 U, PRN (2 UNITS TWICE A DAY ? PLUS HER SLIDING SCALE UP TO 15 UNITS)
     Route: 058
  2. INSULIN LISPRO LILLY [Suspect]
     Active Substance: INSULIN LISPRO
     Dosage: 15 U, PRN (4 UNITS THREE TIMES A DAY PLUS A SLIDING SCALE)
     Route: 058

REACTIONS (2)
  - Blood glucose increased [Unknown]
  - Accidental underdose [Unknown]
